FAERS Safety Report 5674986-1 (Version None)
Quarter: 2008Q1

REPORT INFORMATION
  Report Type: 
  Country: None (occurrence: None)
  Receive Date: 20080320
  Receipt Date: 20080311
  Transmission Date: 20080703
  Serious: Yes (Hospitalization, Other)
  Sender: FDA-Public Use
  Company Number: FR-PFIZER INC-2008022827

PATIENT
  Sex: Female

DRUGS (5)
  1. FARMORUBICIN [Suspect]
     Indication: BREAST CANCER
     Route: 042
     Dates: start: 19860701, end: 19861101
  2. ENDOXAN [Suspect]
     Indication: BREAST CANCER
     Route: 042
     Dates: start: 19860701, end: 19861101
  3. FLUOROURACIL [Suspect]
     Indication: BREAST CANCER
     Route: 042
     Dates: start: 19860701, end: 19861101
  4. IRBESARTAN [Concomitant]
  5. DAFLON [Concomitant]

REACTIONS (1)
  - ENDOMETRIAL CANCER [None]
